FAERS Safety Report 25347934 (Version 1)
Quarter: 2025Q2

REPORT INFORMATION
  Report Type: Spontaneous
  Country: US (occurrence: US)
  Receive Date: 20250522
  Receipt Date: 20250522
  Transmission Date: 20250717
  Serious: Yes (Other)
  Sender: GALPHARM INTERNATIONAL
  Company Number: US-PERRIGO-25US006039

PATIENT
  Age: 0 Year
  Sex: Male
  Weight: 7.347 kg

DRUGS (1)
  1. ACETAMINOPHEN [Suspect]
     Active Substance: ACETAMINOPHEN
     Indication: Pyrexia
     Route: 048
     Dates: start: 20250506, end: 20250506

REACTIONS (5)
  - Haematochezia [Unknown]
  - Infantile spitting up [Recovered/Resolved]
  - Mucous stools [Unknown]
  - Reaction to excipient [Unknown]
  - Product administered to patient of inappropriate age [Recovered/Resolved]

NARRATIVE: CASE EVENT DATE: 20250506
